FAERS Safety Report 6169142-7 (Version None)
Quarter: 2009Q2

REPORT INFORMATION
  Report Type: 
  Country: None (occurrence: None)
  Receive Date: 20090427
  Receipt Date: 20090414
  Transmission Date: 20091009
  Serious: Yes (Other)
  Sender: FDA-Public Use
  Company Number: DE-ELI_LILLY_AND_COMPANY-DE200903000619

PATIENT
  Sex: Female

DRUGS (47)
  1. ZYPREXA [Suspect]
     Indication: ANOREXIA NERVOSA
     Dosage: 10 MG, DAILY (1/D)
     Route: 048
     Dates: start: 20080108, end: 20080317
  2. ZYPREXA [Interacting]
     Dosage: 20 MG, DAILY (1/D)
     Route: 048
     Dates: start: 20080318, end: 20080513
  3. ZYPREXA [Interacting]
     Dosage: 10 MG, DAILY (1/D)
     Route: 048
     Dates: start: 20080514, end: 20080704
  4. SEROQUEL [Interacting]
     Dosage: 75 MG, DAILY (1/D)
     Route: 048
     Dates: start: 20080312, end: 20080312
  5. SEROQUEL [Interacting]
     Dosage: 100 MG, DAILY (1/D)
     Route: 048
     Dates: start: 20080313, end: 20080320
  6. SEROQUEL [Interacting]
     Dosage: 200 MG, DAILY (1/D)
     Route: 048
     Dates: start: 20080321, end: 20080328
  7. SEROQUEL [Interacting]
     Dosage: 300 MG, DAILY (1/D)
     Route: 048
     Dates: start: 20080329, end: 20080330
  8. SEROQUEL [Interacting]
     Dosage: 400 MG, DAILY (1/D)
     Route: 048
     Dates: start: 20080331, end: 20080402
  9. SEROQUEL [Interacting]
     Dosage: 450 MG, DAILY (1/D)
     Route: 048
     Dates: start: 20080403, end: 20080410
  10. SEROQUEL [Interacting]
     Dosage: 550 MG, DAILY (1/D)
     Route: 048
     Dates: start: 20080411, end: 20080509
  11. SEROQUEL [Interacting]
     Dosage: 650 MG, DAILY (1/D)
     Route: 048
     Dates: start: 20080510, end: 20080526
  12. SEROQUEL [Interacting]
     Dosage: 550 MG, DAILY (1/D)
     Route: 048
     Dates: start: 20080527, end: 20080527
  13. SEROQUEL [Interacting]
     Dosage: 250 MG, DAILY (1/D)
     Route: 048
     Dates: start: 20080528, end: 20080530
  14. SEROQUEL [Interacting]
     Dosage: 200 MG, DAILY (1/D)
     Route: 048
     Dates: start: 20080531, end: 20080531
  15. SEROQUEL [Interacting]
     Dosage: 150 MG, DAILY (1/D)
     Route: 048
     Dates: start: 20080601, end: 20080603
  16. SEROQUEL [Interacting]
     Dosage: 100 MG, DAILY (1/D)
     Route: 048
     Dates: start: 20080604, end: 20080604
  17. CIPRALEX [Interacting]
     Dosage: 15 MG, DAILY (1/D)
     Route: 048
     Dates: start: 20080122, end: 20080701
  18. CIPRALEX [Interacting]
     Dosage: 10 MG, DAILY (1/D)
     Route: 048
     Dates: start: 20080701, end: 20080716
  19. AKINETON [Interacting]
     Dosage: 4 MG, DAILY (1/D)
     Route: 048
     Dates: start: 20080306, end: 20080317
  20. AKINETON [Interacting]
     Dosage: 2 MG, DAILY (1/D)
     Route: 048
     Dates: start: 20080318, end: 20080529
  21. AKINETON [Interacting]
     Dosage: UNK, DAILY (1/D)
     Route: 048
     Dates: start: 20080531, end: 20080619
  22. ZOPICLON [Concomitant]
     Dosage: 7.5 MG, DAILY (1/D)
     Route: 048
     Dates: start: 20080107, end: 20080619
  23. PANTOZOL [Concomitant]
     Dosage: 40 MG, DAILY (1/D)
     Route: 048
  24. LEPONEX [Concomitant]
     Dosage: 375 MG, DAILY (1/D)
     Dates: start: 20080604, end: 20080604
  25. LEPONEX [Concomitant]
     Dosage: 25 MG, DAILY (1/D)
     Dates: start: 20080605, end: 20080606
  26. LEPONEX [Concomitant]
     Dosage: 50 MG, DAILY (1/D)
     Dates: start: 20080607, end: 20080608
  27. LEPONEX [Concomitant]
     Dosage: 75 MG, DAILY (1/D)
     Dates: start: 20080609, end: 20080611
  28. LEPONEX [Concomitant]
     Dosage: 100 MG, DAILY (1/D)
     Dates: start: 20080612, end: 20080613
  29. LEPONEX [Concomitant]
     Dosage: 125 MG, DAILY (1/D)
     Dates: start: 20080614, end: 20080616
  30. LEPONEX [Concomitant]
     Dosage: 175 MG, DAILY (1/D)
     Dates: start: 20080617, end: 20080618
  31. LEPONEX [Concomitant]
     Dosage: 225 MG, DAILY (1/D)
     Dates: start: 20080619, end: 20080623
  32. LEPONEX [Concomitant]
     Dosage: 275 MG, DAILY (1/D)
     Dates: start: 20080624, end: 20080703
  33. LEPONEX [Concomitant]
     Dosage: 300 MG, DAILY (1/D)
     Dates: start: 20080704, end: 20080704
  34. LEPONEX [Concomitant]
     Dosage: 325 MG, DAILY (1/D)
     Dates: start: 20080705, end: 20080710
  35. LEPONEX [Concomitant]
     Dosage: 375 MG, DAILY (1/D)
     Dates: start: 20080711, end: 20080714
  36. LEPONEX [Concomitant]
     Dosage: 425 MG, DAILY (1/D)
     Dates: start: 20080715, end: 20080729
  37. LEPONEX [Concomitant]
     Dosage: 475 MG, DAILY (1/D)
     Dates: start: 20080730, end: 20081019
  38. LEPONEX [Concomitant]
     Dosage: 400 MG, DAILY (1/D)
     Dates: start: 20081020, end: 20081020
  39. LEPONEX [Concomitant]
     Dosage: 350 MG, DAILY (1/D)
     Dates: start: 20081021
  40. DIAZEPAM [Concomitant]
     Dosage: 10 D/F, UNK
     Dates: start: 20080318, end: 20080318
  41. LEVOTHYROXINE SODIUM [Concomitant]
     Dosage: 50 UG, DAILY (1/D)
  42. OSTEOPLUS                          /00944201/ [Concomitant]
     Dosage: 0.5 D/F, 3/D
  43. KALINOR [Concomitant]
     Dosage: 1 D/F, DAILY (1/D)
  44. LACTULOSE [Concomitant]
     Dosage: 2 D/F, DAILY (1/D)
     Dates: start: 20080514, end: 20080514
  45. UNIZINK [Concomitant]
     Dosage: 50 MG, DAILY (1/D)
     Dates: start: 20080701
  46. GASTROZEPIN [Concomitant]
     Dosage: 25 MG, DAILY (1/D)
     Dates: start: 20080701
  47. ASPIRIN [Concomitant]
     Dosage: 100 MG, DAILY (1/D)
     Dates: start: 20080701

REACTIONS (5)
  - DRUG INTERACTION [None]
  - HIATUS HERNIA [None]
  - HYPOKALAEMIA [None]
  - REFLUX OESOPHAGITIS [None]
  - SUPRAVENTRICULAR EXTRASYSTOLES [None]
